FAERS Safety Report 15338319 (Version 3)
Quarter: 2018Q4

REPORT INFORMATION
  Report Type: Spontaneous
  Country: FR (occurrence: FR)
  Receive Date: 20180831
  Receipt Date: 20181025
  Transmission Date: 20190204
  Serious: Yes (Hospitalization)
  Sender: FDA-Public Use
  Company Number: FR-ASTRAZENECA-2018SF10070

PATIENT
  Age: 95 Year
  Sex: Male

DRUGS (14)
  1. MOVICOL [Concomitant]
     Active Substance: POLYETHYLENE GLYCOL 3350\POTASSIUM CHLORIDE\SODIUM BICARBONATE\SODIUM CHLORIDE
     Dosage: 2 SACHETS IN THE MORNING AND OCCASIONALLY
  2. ZOPICLONE [Concomitant]
     Active Substance: ZOPICLONE
     Dosage: 1 TABLET (7.5 MG) AT BEDTIME
  3. PARACETAMOL [Concomitant]
     Active Substance: ACETAMINOPHEN
     Dosage: 1GR THREE TIMES A DAY
  4. NALOXEGOL [Suspect]
     Active Substance: NALOXEGOL
     Indication: CONSTIPATION
     Dosage: 1 TABLET IN THE MORNING 20 MINUTES BEFORE MEAL
     Route: 048
     Dates: start: 201710
  5. XATRAL [Concomitant]
     Active Substance: ALFUZOSIN
     Dosage: 1 TABLET (10MG), IN THE EVENING
  6. UVEDOSE [Concomitant]
     Active Substance: CHOLECALCIFEROL
     Dosage: 1 VIAL (100000IU) /15 DAYS THREE INTAKES THEN 1VIAL /THREE MONTHS
  7. MIRTAZAPINE. [Concomitant]
     Active Substance: MIRTAZAPINE
     Dosage: TABLET (15MG) IN THE
  8. DEBRIDAT [Concomitant]
     Active Substance: TRIMEBUTINE MALEATE
     Dosage: 1 SACHET THREE TIMES/DAY
  9. LYRICA [Concomitant]
     Active Substance: PREGABALIN
     Dosage: 1 TABLET (50 MG), THREE TIMES/DAY
  10. LEVOTHYROX [Concomitant]
     Active Substance: LEVOTHYROXINE
  11. ALODONT [Concomitant]
     Active Substance: CETYLPYRIDINIUM CHLORIDE\CHLOROBUTANOL\EUGENOL
     Dosage: 1TABLET (5 MG) IN THE MORNING
  12. FENTANYL. [Concomitant]
     Active Substance: FENTANYL
     Dosage: ONE PATCH (25 MCG/H)/72 HOURS FOR 28 DAYS
  13. NORMACOL [Concomitant]
     Active Substance: HERBALS\KARAYA GUM
  14. CORDARONE [Concomitant]
     Active Substance: AMIODARONE HYDROCHLORIDE

REACTIONS (2)
  - Drug ineffective [Unknown]
  - Subileus [Unknown]

NARRATIVE: CASE EVENT DATE: 20180812
